FAERS Safety Report 19796995 (Version 1)
Quarter: 2021Q3

REPORT INFORMATION
  Report Type: Spontaneous
  Country: US (occurrence: US)
  Receive Date: 20210905
  Receipt Date: 20210905
  Transmission Date: 20211014
  Serious: Yes (Hospitalization, Other)
  Sender: FDA-Public Use
  Company Number: None

PATIENT
  Age: 70 Year
  Sex: Male
  Weight: 113 kg

DRUGS (1)
  1. TOCILIZUMAB. [Suspect]
     Active Substance: TOCILIZUMAB
     Indication: COVID-19
     Dates: start: 20210831, end: 20210831

REACTIONS (10)
  - Staphylococcus test positive [None]
  - Chest discomfort [None]
  - Fatigue [None]
  - Enterococcus test positive [None]
  - Nausea [None]
  - Vomiting [None]
  - Diarrhoea [None]
  - Dyspnoea [None]
  - Dizziness [None]
  - COVID-19 [None]

NARRATIVE: CASE EVENT DATE: 20210902
